FAERS Safety Report 10780598 (Version 3)
Quarter: 2015Q1

REPORT INFORMATION
  Report Type: Spontaneous
  Country: US (occurrence: US)
  Receive Date: 20150210
  Receipt Date: 20150316
  Transmission Date: 20150721
  Serious: Yes (Other)
  Sender: FDA-Public Use
  Company Number: US-PFIZER INC-2015051684

PATIENT
  Age: 33 Year
  Sex: Male

DRUGS (2)
  1. VIAGRA [Suspect]
     Active Substance: SILDENAFIL CITRATE
     Dosage: 10 MG, UNK
     Dates: start: 20150303
  2. VIAGRA [Suspect]
     Active Substance: SILDENAFIL CITRATE
     Indication: ERECTILE DYSFUNCTION
     Dosage: 10 MG, UNK

REACTIONS (8)
  - Erection increased [Recovered/Resolved]
  - Intentional product misuse [Unknown]
  - Ejaculation disorder [Not Recovered/Not Resolved]
  - Penis disorder [Not Recovered/Not Resolved]
  - Male orgasmic disorder [Not Recovered/Not Resolved]
  - Erection increased [Unknown]
  - Sperm concentration increased [Unknown]
  - Spontaneous penile erection [Recovered/Resolved]

NARRATIVE: CASE EVENT DATE: 20150205
